FAERS Safety Report 10850188 (Version 1)
Quarter: 2015Q1

REPORT INFORMATION
  Report Type: Spontaneous
  Country: US (occurrence: US)
  Receive Date: 20150221
  Receipt Date: 20150221
  Transmission Date: 20150721
  Serious: No
  Sender: FDA-Public Use
  Company Number: US-NOVEN-14US010761

PATIENT
  Age: 55 Year
  Sex: Female

DRUGS (5)
  1. MINIVELLE [Suspect]
     Active Substance: ESTRADIOL
     Dosage: 0.075MG, TWICE WEEKLY
     Route: 062
     Dates: start: 201410
  2. TESTOSTERONE. [Concomitant]
     Active Substance: TESTOSTERONE
     Indication: SEXUAL DYSFUNCTION
     Dosage: 4 MG, UNK
     Route: 060
     Dates: start: 201401
  3. AMITRIPTINE [Concomitant]
     Dosage: UNK
     Dates: start: 201408, end: 201410
  4. MINIVELLE [Suspect]
     Active Substance: ESTRADIOL
     Indication: HOT FLUSH
     Dosage: 0.05MG, TWICE WEEKLY
     Route: 062
     Dates: start: 201407
  5. PROGESTERONE. [Concomitant]
     Active Substance: PROGESTERONE
     Indication: SEXUAL DYSFUNCTION
     Dosage: 50 MG, UNK
     Route: 048
     Dates: start: 201401

REACTIONS (2)
  - Insomnia [Not Recovered/Not Resolved]
  - Hot flush [Recovered/Resolved]

NARRATIVE: CASE EVENT DATE: 201409
